FAERS Safety Report 23903597 (Version 1)
Quarter: 2024Q2

REPORT INFORMATION
  Report Type: Spontaneous
  Country: US (occurrence: None)
  Receive Date: 20240527
  Receipt Date: 20240527
  Transmission Date: 20240715
  Serious: Yes (Hospitalization, Other)
  Sender: FDA-Public Use
  Company Number: US-Unichem Pharmaceuticals (USA) Inc-UCM202405-000552

PATIENT
  Age: 17 Year
  Sex: Female

DRUGS (1)
  1. AMLODIPINE [Suspect]
     Active Substance: AMLODIPINE BESYLATE
     Indication: Product used for unknown indication
     Dosage: 200 MG

REACTIONS (5)
  - Circulatory collapse [Recovered/Resolved]
  - Haemodynamic instability [Recovered/Resolved]
  - Hypoglycaemia [Recovered/Resolved]
  - Hypervolaemia [Recovered/Resolved]
  - Intentional overdose [Unknown]
